FAERS Safety Report 4390946-5 (Version None)
Quarter: 2004Q3

REPORT INFORMATION
  Report Type: 
  Country: None (occurrence: None)
  Receive Date: 20040702
  Receipt Date: 20040702
  Transmission Date: 20050211
  Serious: Yes (Death)
  Sender: FDA-Public Use
  Company Number: None

PATIENT
  Sex: Male

DRUGS (2)
  1. VEPESID [Suspect]
     Indication: LUNG NEOPLASM MALIGNANT
     Dosage: 170 MG D 1 IV
     Route: 042
     Dates: start: 20040602
  2. CISPLATIN [Suspect]
     Indication: LUNG NEOPLASM MALIGNANT
     Dosage: 210 MG D1-3 IV
     Route: 042
     Dates: start: 20040602, end: 20040604

REACTIONS (10)
  - BLOOD POTASSIUM DECREASED [None]
  - CARDIAC ARREST [None]
  - DYSPNOEA [None]
  - HYPOTENSION [None]
  - NEUTROPENIA [None]
  - PLATELET COUNT DECREASED [None]
  - RENAL FAILURE ACUTE [None]
  - SEPTIC SHOCK [None]
  - STAPHYLOCOCCAL SEPSIS [None]
  - TUMOUR LYSIS SYNDROME [None]
